FAERS Safety Report 4765373-9 (Version None)
Quarter: 2005Q3

REPORT INFORMATION
  Report Type: 
  Country: None (occurrence: None)
  Receive Date: 20050908
  Receipt Date: 20050908
  Transmission Date: 20060218
  Serious: Yes (Life-Threatening, Hospitalization, Disabling)
  Sender: FDA-Public Use
  Company Number: None

PATIENT
  Sex: Female
  Weight: 68.0396 kg

DRUGS (4)
  1. CELEBREX [Suspect]
     Indication: CARPAL TUNNEL SYNDROME
     Dosage: 200 + 400 MG PO
     Route: 048
     Dates: start: 20000701, end: 20000901
  2. CELEBREX [Suspect]
     Indication: PAIN MANAGEMENT
     Dosage: 200 + 400 MG PO
     Route: 048
     Dates: start: 20000701, end: 20000901
  3. CELEBREX [Suspect]
     Indication: CARPAL TUNNEL SYNDROME
     Dosage: 200 + 400 MG PO
     Route: 048
     Dates: start: 20000901, end: 20010101
  4. CELEBREX [Suspect]
     Indication: PAIN MANAGEMENT
     Dosage: 200 + 400 MG PO
     Route: 048
     Dates: start: 20000901, end: 20010101

REACTIONS (5)
  - CARDIOVASCULAR DISORDER [None]
  - CEREBROVASCULAR ACCIDENT [None]
  - DRUG HYPERSENSITIVITY [None]
  - MYOCARDIAL INFARCTION [None]
  - MYOCARDIAL ISCHAEMIA [None]
